FAERS Safety Report 20802691 (Version 1)
Quarter: 2022Q2

REPORT INFORMATION
  Report Type: Spontaneous
  Country: US (occurrence: US)
  Receive Date: 20220509
  Receipt Date: 20220509
  Transmission Date: 20220721
  Serious: No
  Sender: FDA-Public Use
  Company Number: US-BRISTOL-MYERS SQUIBB COMPANY-2022-035591

PATIENT
  Age: 71 Year
  Sex: Female

DRUGS (1)
  1. ORENCIA [Suspect]
     Active Substance: ABATACEPT
     Indication: Rheumatoid arthritis
     Dosage: 250 MG/ML, EVERY MONTH
     Route: 042
     Dates: start: 20190201

REACTIONS (3)
  - Joint swelling [Unknown]
  - Arthralgia [Unknown]
  - Prescribed underdose [Unknown]
